FAERS Safety Report 5032770-6 (Version None)
Quarter: 2006Q2

REPORT INFORMATION
  Report Type: 
  Country: None (occurrence: None)
  Receive Date: 20060515
  Receipt Date: 20060207
  Transmission Date: 20061013
  Serious: No
  Sender: FDA-Public Use
  Company Number: S06-USA-00468-01

PATIENT
  Age: 82 Year
  Sex: Female

DRUGS (8)
  1. NAMENDA [Suspect]
     Indication: DEMENTIA
     Dosage: 5 MG BID PO
     Route: 047
     Dates: start: 20060126, end: 20060128
  2. NAMENDA [Suspect]
     Indication: DEMENTIA
     Dosage: 5 MG QD PO
     Route: 048
     Dates: start: 20060119, end: 20060125
  3. NAMENDA [Suspect]
     Indication: DEMENTIA
     Dosage: 5 MG QD PO
     Route: 048
     Dates: start: 20060206
  4. TRAMADOL [Suspect]
     Indication: ARTHRITIS
     Dates: end: 20060130
  5. ARICEPT [Concomitant]
  6. ACETAMINOPHEN [Concomitant]
  7. ATENOLOL [Concomitant]
  8. LEVOXYL [Concomitant]

REACTIONS (2)
  - HALLUCINATION, VISUAL [None]
  - SPECIFIC GRAVITY URINE INCREASED [None]
